FAERS Safety Report 24709463 (Version 1)
Quarter: 2024Q4

REPORT INFORMATION
  Report Type: Spontaneous
  Country: RU (occurrence: RU)
  Receive Date: 20241209
  Receipt Date: 20241209
  Transmission Date: 20250115
  Serious: Yes (Life-Threatening, Hospitalization, Other)
  Sender: JOHNSON AND JOHNSON
  Company Number: RU-BAYER-2024A173170

PATIENT
  Age: 70 Year
  Sex: Female
  Weight: 80 kg

DRUGS (11)
  1. XARELTO [Suspect]
     Active Substance: RIVAROXABAN
     Indication: Atrial fibrillation
     Dosage: 20 MG, QD
     Route: 048
     Dates: start: 20241125, end: 20241201
  2. ATORVASTATIN [Concomitant]
     Active Substance: ATORVASTATIN
     Indication: Arteriosclerosis
     Dosage: 20 MG, QD
     Route: 048
     Dates: start: 20241125, end: 20241201
  3. LISINOPRIL [Concomitant]
     Active Substance: LISINOPRIL
     Indication: Hypertensive heart disease
     Dosage: 2.5 MG, QD
     Route: 048
     Dates: start: 20241125, end: 20241201
  4. SPIRONOLACTONE [Concomitant]
     Active Substance: SPIRONOLACTONE
     Indication: Cardiac failure congestive
     Dosage: 50 MG, QD
     Route: 048
     Dates: start: 20241125, end: 20241201
  5. FUROSEMIDE [Concomitant]
     Active Substance: FUROSEMIDE
     Indication: Cardiac failure congestive
     Dosage: 80 MG, QD
     Route: 048
     Dates: start: 20241125, end: 20241201
  6. BISOPROLOL [Concomitant]
     Active Substance: BISOPROLOL
     Indication: Hypertensive heart disease
     Dosage: 2.5 MG, QD
     Route: 048
     Dates: start: 20241125, end: 20241201
  7. Ferrum [Concomitant]
     Indication: Anaemia
     Dosage: 100 MG, QD
     Route: 048
     Dates: start: 20241125, end: 20241201
  8. OMEPRAZOLE [Concomitant]
     Active Substance: OMEPRAZOLE
     Indication: Product used for unknown indication
     Dosage: 20 MG, QD
     Route: 048
     Dates: start: 20241125, end: 20241201
  9. UNSPECIFIED INGREDIENT [Concomitant]
     Active Substance: UNSPECIFIED INGREDIENT
     Indication: Product used for unknown indication
  10. UNSPECIFIED INGREDIENT [Concomitant]
     Active Substance: UNSPECIFIED INGREDIENT
     Indication: Product used for unknown indication
  11. UNSPECIFIED INGREDIENT [Concomitant]
     Active Substance: UNSPECIFIED INGREDIENT
     Indication: Product used for unknown indication

REACTIONS (8)
  - Coagulopathy [Recovering/Resolving]
  - Gastrointestinal anastomotic haemorrhage [Not Recovered/Not Resolved]
  - Gastritis haemorrhagic [Not Recovered/Not Resolved]
  - Erosive oesophagitis [Not Recovered/Not Resolved]
  - General physical health deterioration [Unknown]
  - Haematemesis [Unknown]
  - Asthenia [Unknown]
  - Abdominal pain upper [Unknown]

NARRATIVE: CASE EVENT DATE: 20241128
